FAERS Safety Report 23639291 (Version 1)
Quarter: 2024Q1

REPORT INFORMATION
  Report Type: Spontaneous
  Country: PL (occurrence: PL)
  Receive Date: 20240316
  Receipt Date: 20240316
  Transmission Date: 20240410
  Serious: Yes (Other)
  Sender: FDA-Public Use
  Company Number: PL-URPL-DML-MLP.4401.1.2931.2021

PATIENT
  Age: 84 Year
  Sex: Male

DRUGS (4)
  1. FUROSEMIDE [Suspect]
     Active Substance: FUROSEMIDE
     Indication: Pleural effusion
     Dosage: 40 MILLIGRAM
     Route: 042
     Dates: start: 20210111, end: 20210114
  2. DEXAMETHASONE [Concomitant]
     Active Substance: DEXAMETHASONE
     Indication: Chronic obstructive pulmonary disease
     Dosage: 4 MILLIGRAM
     Route: 042
     Dates: start: 20210109, end: 20210118
  3. ACETAMINOPHEN [Concomitant]
     Active Substance: ACETAMINOPHEN
     Indication: Back pain
     Dosage: 1.0 (DOSE UNIT UNKNOWN)
     Route: 042
     Dates: start: 20210110, end: 20210118
  4. NADROPARIN CALCIUM [Concomitant]
     Active Substance: NADROPARIN CALCIUM
     Indication: Pleural effusion
     Dosage: 0.4 (DOSE UNIT UNKNOWN)
     Route: 058
     Dates: start: 20210109, end: 20210118

REACTIONS (2)
  - Hypokalaemia [Recovered/Resolved]
  - Palpitations [Recovered/Resolved]

NARRATIVE: CASE EVENT DATE: 20210111
